FAERS Safety Report 13039062 (Version 2)
Quarter: 2016Q4

REPORT INFORMATION
  Report Type: Spontaneous
  Country: US (occurrence: US)
  Receive Date: 20161219
  Receipt Date: 20161221
  Transmission Date: 20170207
  Serious: Yes (Hospitalization)
  Sender: FDA-Public Use
  Company Number: US-ROCHE-1868027

PATIENT
  Age: 94 Year
  Sex: Female

DRUGS (2)
  1. ERIVEDGE [Suspect]
     Active Substance: VISMODEGIB
     Indication: DEMENTIA
     Route: 048
     Dates: start: 201610, end: 20161213
  2. ERIVEDGE [Suspect]
     Active Substance: VISMODEGIB
     Indication: BASAL CELL CARCINOMA

REACTIONS (3)
  - Dementia [Unknown]
  - General physical health deterioration [Unknown]
  - Dysphagia [Unknown]

NARRATIVE: CASE EVENT DATE: 20161114
